FAERS Safety Report 15471249 (Version 2)
Quarter: 2018Q4

REPORT INFORMATION
  Report Type: Spontaneous
  Country: US (occurrence: US)
  Receive Date: 20181006
  Receipt Date: 20181117
  Transmission Date: 20190205
  Serious: No
  Sender: FDA-Public Use
  Company Number: US-JNJFOC-20180901919

PATIENT
  Age: 80 Year
  Sex: Male

DRUGS (1)
  1. ERLEADA [Suspect]
     Active Substance: APALUTAMIDE
     Indication: PRODUCT USED FOR UNKNOWN INDICATION
     Route: 048
     Dates: start: 201806, end: 201807

REACTIONS (8)
  - Myalgia [Recovered/Resolved]
  - Asthenia [Recovered/Resolved]
  - Hypoaesthesia [Unknown]
  - Vision blurred [Recovered/Resolved]
  - Arthralgia [Recovered/Resolved]
  - Hallucination, visual [Unknown]
  - Somnolence [Unknown]
  - Visual impairment [Recovered/Resolved]

NARRATIVE: CASE EVENT DATE: 20180704
